FAERS Safety Report 5877966-6 (Version None)
Quarter: 2008Q3

REPORT INFORMATION
  Report Type: 
  Country: None (occurrence: None)
  Receive Date: 20080911
  Receipt Date: 20080908
  Transmission Date: 20090109
  Serious: Yes (Other)
  Sender: FDA-Public Use
  Company Number: JP-ASTRAZENECA-2008AP07066

PATIENT
  Age: 80 Year
  Sex: Male

DRUGS (1)
  1. ZOLADEX [Suspect]
     Indication: PROSTATE CANCER
     Dosage: EVERY 16 WEEKS
     Route: 058

REACTIONS (1)
  - ASPARTATE AMINOTRANSFERASE INCREASED [None]
